FAERS Safety Report 5499369-9 (Version None)
Quarter: 2007Q4

REPORT INFORMATION
  Report Type: 
  Country: None (occurrence: None)
  Receive Date: 20071026
  Receipt Date: 20071018
  Transmission Date: 20080405
  Serious: Yes (Hospitalization)
  Sender: FDA-Public Use
  Company Number: A0686646A

PATIENT
  Age: 18 Year
  Sex: Female

DRUGS (5)
  1. AUGMENTIN '125' [Suspect]
     Indication: DRUG USE FOR UNKNOWN INDICATION
     Route: 048
     Dates: start: 20060501
  2. FELBATOL [Suspect]
     Dosage: 1800MG PER DAY
  3. LAMICTAL [Suspect]
     Indication: DRUG USE FOR UNKNOWN INDICATION
  4. KEPPRA [Concomitant]
     Indication: EPILEPSY
     Dosage: 750U TWICE PER DAY
  5. KLONOPIN [Concomitant]
     Indication: EPILEPSY
     Dosage: 1.5MG TWICE PER DAY

REACTIONS (12)
  - ADRENAL INSUFFICIENCY [None]
  - AGRANULOCYTOSIS [None]
  - CARDIAC FAILURE CONGESTIVE [None]
  - DIARRHOEA [None]
  - EAR PAIN [None]
  - LUNG INJURY [None]
  - PANCYTOPENIA [None]
  - PLEURAL EFFUSION [None]
  - RASH [None]
  - RENAL FAILURE [None]
  - SEPSIS [None]
  - SPLENOMEGALY [None]
